FAERS Safety Report 5921652-0 (Version None)
Quarter: 2008Q4

REPORT INFORMATION
  Report Type: 
  Country: None (occurrence: None)
  Receive Date: 20081017
  Receipt Date: 20081009
  Transmission Date: 20090506
  Serious: Yes (Hospitalization)
  Sender: FDA-Public Use
  Company Number: US-RB-005173-08

PATIENT
  Age: 85 Year
  Sex: Female

DRUGS (2)
  1. MUCINEX [Suspect]
     Route: 048
  2. CARTIA XT [Concomitant]
     Dates: start: 20080101

REACTIONS (1)
  - HEART RATE INCREASED [None]
